FAERS Safety Report 14335599 (Version 1)
Quarter: 2017Q4

REPORT INFORMATION
  Report Type: Spontaneous
  Country: DK (occurrence: DK)
  Receive Date: 20171229
  Receipt Date: 20171229
  Transmission Date: 20180321
  Serious: Yes (Hospitalization)
  Sender: FDA-Public Use
  Company Number: DK-TEVA-2017-DK-835511

PATIENT
  Age: 48 Year
  Sex: Male

DRUGS (5)
  1. PRIMCILLIN [Suspect]
     Active Substance: PENICILLIN V POTASSIUM
     Indication: TOOTH ABSCESS
     Route: 048
     Dates: start: 20171108, end: 20171117
  2. CLOPIDOGREL [Concomitant]
     Active Substance: CLOPIDOGREL BISULFATE
     Indication: THROMBOSIS PROPHYLAXIS
     Route: 048
     Dates: start: 20150323
  3. SIMVASTATIN. [Concomitant]
     Active Substance: SIMVASTATIN
     Indication: HYPERCHOLESTEROLAEMIA
     Dosage: 40 MILLIGRAM DAILY; 1 TABLET BEFORE BEDTIME
     Route: 048
     Dates: start: 20150323
  4. METRONIDAZOL ACTAVIS [Suspect]
     Active Substance: METRONIDAZOLE
     Indication: TOOTH ABSCESS
     Route: 048
     Dates: start: 20171108, end: 20171117
  5. HJERTEMAGNYL [Concomitant]
     Active Substance: ASPIRIN\MAGNESIUM OXIDE
     Indication: THROMBOSIS PROPHYLAXIS
     Dosage: STYRKE: 75 MG.
     Route: 048
     Dates: start: 20161222

REACTIONS (6)
  - Lip oedema [Recovering/Resolving]
  - Larynx irritation [Recovering/Resolving]
  - Erythema [Recovering/Resolving]
  - Odynophagia [Recovering/Resolving]
  - Oedema peripheral [Recovering/Resolving]
  - Pruritus [Recovering/Resolving]

NARRATIVE: CASE EVENT DATE: 20171118
